FAERS Safety Report 8393673-2 (Version None)
Quarter: 2012Q2

REPORT INFORMATION
  Report Type: 
  Country: None (occurrence: None)
  Receive Date: 20120530
  Receipt Date: 20120521
  Transmission Date: 20120825
  Serious: No
  Sender: FDA-Public Use
  Company Number: US-BIOGENIDEC-2012BI014473

PATIENT
  Age: 50 Year
  Sex: Female

DRUGS (2)
  1. TYSABRI [Suspect]
     Indication: MULTIPLE SCLEROSIS
     Route: 042
     Dates: start: 20100318, end: 20110201
  2. TYSABRI [Suspect]
     Route: 042
     Dates: start: 20120411

REACTIONS (10)
  - CONSTIPATION [None]
  - GAIT DISTURBANCE [None]
  - BLOOD PRESSURE DECREASED [None]
  - LETHARGY [None]
  - POOR VENOUS ACCESS [None]
  - PAIN IN EXTREMITY [None]
  - LIVER DISORDER [None]
  - FATIGUE [None]
  - VISUAL IMPAIRMENT [None]
  - LIVER FUNCTION TEST ABNORMAL [None]
